FAERS Safety Report 5168660-8 (Version None)
Quarter: 2006Q4

REPORT INFORMATION
  Report Type: 
  Country: None (occurrence: None)
  Receive Date: 20061211
  Receipt Date: 20060515
  Transmission Date: 20070319
  Serious: Yes (Other)
  Sender: FDA-Public Use
  Company Number: PHBS2006GR07319

PATIENT
  Age: 56 Year
  Sex: Female

DRUGS (1)
  1. CO-DIOVAN [Suspect]
     Dosage: UNK, UNK
     Route: 048

REACTIONS (3)
  - CATARACT [None]
  - CATARACT OPERATION [None]
  - VISUAL DISTURBANCE [None]
